FAERS Safety Report 6912522-X (Version None)
Quarter: 2010Q3

REPORT INFORMATION
  Report Type: 
  Country: None (occurrence: None)
  Receive Date: 20100806
  Receipt Date: 20080712
  Transmission Date: 20110219
  Serious: Yes (Other)
  Sender: FDA-Public Use
  Company Number: US-PFIZER INC-2008050992

PATIENT
  Sex: Female
  Weight: 48 kg

DRUGS (13)
  1. VFEND [Suspect]
     Indication: CANDIDIASIS
     Route: 042
     Dates: start: 20080612
  2. PLAQUENIL [Concomitant]
  3. LEXAPRO [Concomitant]
  4. ACETAMINOPHEN [Concomitant]
  5. NEXIUM [Concomitant]
  6. LORTAB [Concomitant]
  7. ZOCOR [Concomitant]
  8. DIOVANE [Concomitant]
  9. ESOMEPRAZOLE MAGNESIUM [Concomitant]
  10. PROMETHAZINE [Concomitant]
  11. FLUOXETINE [Concomitant]
  12. HYDROXYCHLOROQUINE [Concomitant]
  13. LOSARTAN POSTASSIUM [Concomitant]

REACTIONS (2)
  - PLATELET COUNT DECREASED [None]
  - THROMBOTIC THROMBOCYTOPENIC PURPURA [None]
